FAERS Safety Report 17206338 (Version 1)
Quarter: 2019Q4

REPORT INFORMATION
  Report Type: Spontaneous
  Country: US (occurrence: US)
  Receive Date: 20191227
  Receipt Date: 20191227
  Transmission Date: 20200122
  Serious: Yes (Hospitalization)
  Sender: FDA-Public Use
  Company Number: US-TEVA-2019-US-1160059

PATIENT
  Age: 2 Month
  Sex: Female
  Weight: 2.73 kg

DRUGS (6)
  1. SUCOSE [Concomitant]
     Route: 048
  2. LACOBACISLIS [Concomitant]
  3. MULTIVIATAMIN [Concomitant]
  4. AQUAPHORE [Concomitant]
     Route: 061
  5. URSODIOL. [Suspect]
     Active Substance: URSODIOL
     Indication: CHOLESTASIS
     Route: 065
     Dates: start: 20191122, end: 20191214
  6. FERROUS SULFATE. [Concomitant]
     Active Substance: FERROUS SULFATE

REACTIONS (2)
  - Necrotising colitis [Unknown]
  - Abdominal distension [Unknown]

NARRATIVE: CASE EVENT DATE: 20191215
